FAERS Safety Report 13859691 (Version 1)
Quarter: 2017Q3

REPORT INFORMATION
  Report Type: Spontaneous
  Country: US (occurrence: US)
  Receive Date: 20170811
  Receipt Date: 20170811
  Transmission Date: 20171127
  Serious: No
  Sender: FDA-Public Use
  Company Number: None

PATIENT
  Age: 49 Year
  Sex: Female

DRUGS (1)
  1. TASIGNA [Suspect]
     Active Substance: NILOTINIB

REACTIONS (4)
  - Chills [None]
  - Headache [None]
  - Hepatic enzyme increased [None]
  - Abdominal pain [None]

NARRATIVE: CASE EVENT DATE: 20170808
